FAERS Safety Report 4664841-8 (Version None)
Quarter: 2005Q2

REPORT INFORMATION
  Report Type: 
  Country: None (occurrence: None)
  Receive Date: 20050517
  Receipt Date: 20050504
  Transmission Date: 20051028
  Serious: Yes (Other)
  Sender: FDA-Public Use
  Company Number: HQWYE554305MAY05

PATIENT
  Age: 47 Year
  Sex: Male

DRUGS (11)
  1. PANTOPRAZOLE SODIUM [Suspect]
  2. AMISULPRIDE (AMISULPRIDE, ) [Suspect]
     Dosage: ^SOME TIME (S) SOME DF^ ORAL
     Route: 048
  3. ATENOLOL [Suspect]
     Dosage: ^SOME TIME(S) SOME DF^ ORAL
     Route: 048
  4. DOXAZOSIN MESYLATE [Suspect]
     Dosage: ^SOME TIME(S) SOME DF^ ORAL
     Route: 048
  5. FENTANYL [Suspect]
     Dosage: ^SOME TIME(S) SOME DF^ INTRAVENOUS
     Route: 042
  6. HALOPERIDOL [Suspect]
  7. OMEPRAZOLE [Suspect]
  8. PROCYCLIDINE HYDROCHLORIDE 2MG TAB [Suspect]
     Dosage: ^SOME TIME(S) SOME DF^ ORAL
     Route: 048
  9. RIFAMPICIN [Suspect]
     Dosage: ^SOME TIME(S) SOME DF^ INTRAVENOUS
     Route: 042
  10. ZOPICLONE (ZOPICLONE, ) [Suspect]
  11. ZYVOX [Suspect]
     Indication: STAPHYLOCOCCAL INFECTION
     Dosage: 600 MG 2X PER 1 DAY INTRAVENOUS
     Route: 042
     Dates: start: 20041017, end: 20041020

REACTIONS (2)
  - BLOOD PRESSURE SYSTOLIC INCREASED [None]
  - DRUG INTERACTION [None]
